FAERS Safety Report 6534796-X (Version None)
Quarter: 2010Q1

REPORT INFORMATION
  Report Type: 
  Country: None (occurrence: None)
  Receive Date: 20100112
  Receipt Date: 20100108
  Transmission Date: 20100710
  Serious: Yes (Hospitalization, Other)
  Sender: FDA-Public Use
  Company Number: US-ELI_LILLY_AND_COMPANY-US201001001688

PATIENT
  Sex: Female

DRUGS (5)
  1. HUMULIN N [Suspect]
     Indication: DIABETES MELLITUS
     Dosage: 27 U, DAILY (1/D)
     Dates: start: 19900101
  2. HUMULIN R [Suspect]
     Indication: DIABETES MELLITUS
     Dosage: UNK, AS NEEDED
     Dates: start: 19900101
  3. ANTIHYPERTENSIVES [Concomitant]
  4. TYLENOL (CAPLET) [Concomitant]
  5. INSULIN [Concomitant]

REACTIONS (3)
  - CEREBROVASCULAR ACCIDENT [None]
  - INSOMNIA [None]
  - MUSCULAR WEAKNESS [None]
